FAERS Safety Report 7766760-7 (Version None)
Quarter: 2011Q3

REPORT INFORMATION
  Report Type: 
  Country: None (occurrence: None)
  Receive Date: 20110922
  Receipt Date: 20110519
  Transmission Date: 20111222
  Serious: No
  Sender: FDA-Public Use
  Company Number: US-ASTRAZENECA-2010SE58086

PATIENT
  Age: 661 Month
  Sex: Female

DRUGS (5)
  1. DETROL LA [Concomitant]
     Indication: BLADDER DISORDER
  2. NIACIN [Concomitant]
     Indication: HYPERCHOLESTEROLAEMIA
  3. VITAMIN TAB [Concomitant]
  4. SEROQUEL [Suspect]
     Indication: BIPOLAR I DISORDER
     Route: 048
  5. ZOLOFT [Concomitant]

REACTIONS (3)
  - ROAD TRAFFIC ACCIDENT [None]
  - WRONG DRUG ADMINISTERED [None]
  - MUSCULOSKELETAL PAIN [None]
